FAERS Safety Report 5457104-4 (Version None)
Quarter: 2007Q3

REPORT INFORMATION
  Report Type: 
  Country: None (occurrence: None)
  Receive Date: 20070918
  Receipt Date: 20070108
  Transmission Date: 20080115
  Serious: No
  Sender: FDA-Public Use
  Company Number: US-ASTRAZENECA-2007UW00336

PATIENT
  Age: 49 Year
  Sex: Male

DRUGS (5)
  1. SEROQUEL [Suspect]
     Indication: BIPOLAR DISORDER
     Route: 048
  2. SEROQUEL [Suspect]
     Route: 048
     Dates: start: 20061201
  3. LEXAPRO [Concomitant]
  4. CARBATROL [Concomitant]
  5. CLONOPIN [Concomitant]

REACTIONS (3)
  - DYSPNOEA [None]
  - SKIN TIGHTNESS [None]
  - TREMOR [None]
